FAERS Safety Report 21793054 (Version 3)
Quarter: 2023Q2

REPORT INFORMATION
  Report Type: Spontaneous
  Country: US (occurrence: US)
  Receive Date: 20221229
  Receipt Date: 20230404
  Transmission Date: 20230722
  Serious: Yes (Other)
  Sender: FDA-Public Use
  Company Number: US-002147023-NVSC2022US297561

PATIENT
  Sex: Male

DRUGS (3)
  1. VOTRIENT [Suspect]
     Active Substance: PAZOPANIB HYDROCHLORIDE
     Indication: Connective tissue neoplasm
     Dosage: 800 MG, QD
     Route: 048
     Dates: start: 20221209
  2. VOTRIENT [Suspect]
     Active Substance: PAZOPANIB HYDROCHLORIDE
     Indication: Metastasis
     Dosage: 800 MG, QD
     Route: 048
     Dates: start: 20221214
  3. VOTRIENT [Suspect]
     Active Substance: PAZOPANIB HYDROCHLORIDE
     Dosage: 800 MG, QD
     Route: 048
     Dates: start: 202212

REACTIONS (5)
  - Neuropathy peripheral [Unknown]
  - Taste disorder [Unknown]
  - Decreased appetite [Unknown]
  - Arthralgia [Unknown]
  - Diarrhoea [Unknown]
